FAERS Safety Report 19264227 (Version 1)
Quarter: 2021Q2

REPORT INFORMATION
  Report Type: Spontaneous
  Country: US (occurrence: US)
  Receive Date: 20210515
  Receipt Date: 20210515
  Transmission Date: 20210717
  Serious: Yes (Other)
  Sender: FDA-Public Use
  Company Number: None

PATIENT
  Age: 35 Year
  Sex: Female
  Weight: 74.25 kg

DRUGS (1)
  1. OCEAN POTION WATER SPORT SPF50 SUNSCREEN [Suspect]
     Active Substance: AVOBENZONE\HOMOSALATE\OCTISALATE\OCTOCRYLENE
     Indication: PROPHYLAXIS AGAINST SOLAR RADIATION
     Dates: start: 20210510, end: 20210510

REACTIONS (6)
  - Product complaint [None]
  - Rash erythematous [None]
  - Application site rash [None]
  - Rash pruritic [None]
  - Hypersensitivity [None]
  - Rash papular [None]

NARRATIVE: CASE EVENT DATE: 20210511
